FAERS Safety Report 15728804 (Version 2)
Quarter: 2019Q3

REPORT INFORMATION
  Report Type: Spontaneous
  Country: US (occurrence: US)
  Receive Date: 20181217
  Receipt Date: 20190701
  Transmission Date: 20191004
  Serious: No
  Sender: FDA-Public Use
  Company Number: US-MYLANLABS-2018M1090313

PATIENT
  Sex: Female
  Weight: 81 kg

DRUGS (1)
  1. FENTANYL TRANSDERMAL SYSTEM [Suspect]
     Active Substance: FENTANYL
     Indication: BACK PAIN
     Dosage: 50 MCG/HR 72 HR

REACTIONS (4)
  - Application site rash [Recovered/Resolved]
  - Product adhesion issue [Unknown]
  - Application site pruritus [Recovered/Resolved]
  - Product quality issue [Unknown]
